FAERS Safety Report 6704749-7 (Version None)
Quarter: 2010Q2

REPORT INFORMATION
  Report Type: 
  Country: None (occurrence: None)
  Receive Date: 20100430
  Receipt Date: 20090611
  Transmission Date: 20101027
  Serious: No
  Sender: FDA-Public Use
  Company Number: US-BAUSCH-2009BL002903

PATIENT
  Age: 20 Year
  Sex: Female

DRUGS (1)
  1. ALREX [Suspect]
     Indication: EYE INFECTION
     Route: 047
     Dates: start: 20081201, end: 20090608

REACTIONS (2)
  - ERYTHEMA [None]
  - PRURITUS GENERALISED [None]
